FAERS Safety Report 24949871 (Version 1)
Quarter: 2025Q1

REPORT INFORMATION
  Report Type: Spontaneous
  Country: US (occurrence: US)
  Receive Date: 20250210
  Receipt Date: 20250210
  Transmission Date: 20250409
  Serious: No
  Sender: SANDOZ
  Company Number: US-SANDOZ-SDZ2025US007522

PATIENT
  Age: 55 Year
  Sex: Female
  Weight: 50.794 kg

DRUGS (1)
  1. COMBIPATCH [Suspect]
     Active Substance: ESTRADIOL\NORETHINDRONE ACETATE
     Indication: Menopause
     Route: 062
     Dates: start: 2024

REACTIONS (3)
  - Vision blurred [Recovered/Resolved]
  - Dementia [Recovered/Resolved]
  - Brain fog [Recovered/Resolved]
